FAERS Safety Report 6590015-X (Version None)
Quarter: 2010Q1

REPORT INFORMATION
  Report Type: 
  Country: None (occurrence: None)
  Receive Date: 20100219
  Receipt Date: 20100209
  Transmission Date: 20100710
  Serious: Yes (Other)
  Sender: FDA-Public Use
  Company Number: PHHY2010AU07147

PATIENT
  Sex: Male

DRUGS (2)
  1. TEGRETOL-XR [Suspect]
     Indication: PAIN
     Dosage: 400 MG, BID
     Route: 048
  2. ENDEP [Concomitant]
     Indication: PAIN
     Dosage: 25 MG, UNK

REACTIONS (3)
  - COLORECTAL CANCER [None]
  - DRUG INEFFECTIVE [None]
  - PAIN [None]
